FAERS Safety Report 6408191-8 (Version None)
Quarter: 2009Q4

REPORT INFORMATION
  Report Type: 
  Country: None (occurrence: None)
  Receive Date: 20091019
  Receipt Date: 20091005
  Transmission Date: 20100525
  Serious: Yes (Death, Hospitalization)
  Sender: FDA-Public Use
  Company Number: 2009AC000124

PATIENT
  Sex: Male

DRUGS (26)
  1. DIGOXIN [Suspect]
     Dosage: PO
     Route: 048
     Dates: start: 20070307
  2. CELEXA [Concomitant]
  3. LORAZEPAM [Concomitant]
  4. AMARYL [Concomitant]
  5. HUMALOG [Concomitant]
  6. HEPARIN [Concomitant]
  7. PROTONIX [Concomitant]
  8. CORDARONE [Concomitant]
  9. ASPIRIN [Concomitant]
  10. LASIX [Concomitant]
  11. SYNTHROID [Concomitant]
  12. LITHIUM [Concomitant]
  13. PLAVIX [Concomitant]
  14. COLACE [Concomitant]
  15. CRESTOR [Concomitant]
  16. GERITOL [Concomitant]
  17. ALDACTONE [Concomitant]
  18. COREG [Concomitant]
  19. SENOKOT [Concomitant]
  20. LOTENSIN [Concomitant]
  21. ADVAIR DISKUS 100/50 [Concomitant]
  22. SPIRIVA [Concomitant]
  23. MUCINEX [Concomitant]
  24. FLONASE [Concomitant]
  25. ALBUTEROL [Concomitant]
  26. WELLBUTRIN [Concomitant]

REACTIONS (8)
  - AORTIC ANEURYSM [None]
  - CEREBROVASCULAR ACCIDENT [None]
  - ECONOMIC PROBLEM [None]
  - EMOTIONAL DISORDER [None]
  - INJURY [None]
  - PNEUMONIA [None]
  - SURGERY [None]
  - THERAPEUTIC AGENT TOXICITY [None]
